FAERS Safety Report 6496315-6 (Version None)
Quarter: 2009Q4

REPORT INFORMATION
  Report Type: 
  Country: None (occurrence: None)
  Receive Date: 20091209
  Receipt Date: 20091124
  Transmission Date: 20100525
  Serious: Yes (Other)
  Sender: FDA-Public Use
  Company Number: PAR_03262_2009

PATIENT
  Age: 77 Year
  Sex: Male

DRUGS (5)
  1. PERGOLIDE MESYLATE [Suspect]
     Indication: DRUG USE FOR UNKNOWN INDICATION
     Dosage: 2 MG
  2. ENTACAPONE [Concomitant]
  3. CO-BENELDOPA [Concomitant]
  4. ASPIRIN [Concomitant]
  5. FUROSEMIDE [Concomitant]

REACTIONS (11)
  - AORTIC VALVE SCLEROSIS [None]
  - ATELECTASIS [None]
  - C-REACTIVE PROTEIN INCREASED [None]
  - CARBON MONOXIDE DIFFUSING CAPACITY DECREASED [None]
  - DYSPNOEA [None]
  - PLEURAL DISORDER [None]
  - PLEURAL EFFUSION [None]
  - PLEURAL FIBROSIS [None]
  - PO2 DECREASED [None]
  - RED BLOOD CELL SEDIMENTATION RATE INCREASED [None]
  - TOTAL LUNG CAPACITY DECREASED [None]
